FAERS Safety Report 25997859 (Version 4)
Quarter: 2025Q4

REPORT INFORMATION
  Report Type: Report from Study
  Country: TW (occurrence: TW)
  Receive Date: 20251105
  Receipt Date: 20251211
  Transmission Date: 20260117
  Serious: Yes (Hospitalization)
  Sender: ABBVIE
  Company Number: TW-ABBVIE-6522736

PATIENT
  Age: 46 Year
  Sex: Male
  Weight: 84 kg

DRUGS (2)
  1. RINVOQ [Suspect]
     Active Substance: UPADACITINIB
     Indication: Dermatitis atopic
     Dosage: MODIFIED-RELEASE CAPSULE, HARD
     Route: 048
     Dates: start: 20250620, end: 20251024
  2. XYZAL [Concomitant]
     Active Substance: LEVOCETIRIZINE DIHYDROCHLORIDE
     Indication: Dermatitis atopic
     Route: 048
     Dates: start: 20251024

REACTIONS (4)
  - Hepatitis [Recovering/Resolving]
  - Musculoskeletal chest pain [Unknown]
  - Hepatic steatosis [Unknown]
  - Cold sweat [Unknown]

NARRATIVE: CASE EVENT DATE: 20250101
